FAERS Safety Report 7687061-1 (Version None)
Quarter: 2011Q3

REPORT INFORMATION
  Report Type: 
  Country: None (occurrence: None)
  Receive Date: 20110816
  Receipt Date: 20110813
  Transmission Date: 20111222
  Serious: Yes (Other)
  Sender: FDA-Public Use
  Company Number: US-PFIZER INC-2011186375

PATIENT
  Sex: Female
  Weight: 88 kg

DRUGS (1)
  1. PRISTIQ [Suspect]
     Indication: DEPRESSION
     Dosage: 50 MG
     Route: 048
     Dates: start: 20110701

REACTIONS (5)
  - WEIGHT INCREASED [None]
  - DYSURIA [None]
  - PAIN [None]
  - OEDEMA PERIPHERAL [None]
  - JOINT SWELLING [None]
